FAERS Safety Report 12988352 (Version 3)
Quarter: 2016Q4

REPORT INFORMATION
  Report Type: Report from Study
  Country: DE (occurrence: DE)
  Receive Date: 20161130
  Receipt Date: 20161221
  Transmission Date: 20170207
  Serious: Yes (Hospitalization)
  Sender: FDA-Public Use
  Company Number: PHHY2016DE152101

PATIENT
  Age: 63 Year
  Sex: Male
  Weight: 84.4 kg

DRUGS (4)
  1. RIVAROXABAN [Concomitant]
     Active Substance: RIVAROXABAN
     Indication: ATRIAL FIBRILLATION
     Dosage: 1 DF (20 MG), QD
     Route: 048
  2. ENTRESTO [Suspect]
     Active Substance: SACUBITRIL\VALSARTAN
     Indication: CARDIAC FAILURE
     Dosage: 50 MG (24/26 MG), BID
     Route: 048
     Dates: start: 20160919, end: 20160928
  3. ENTRESTO [Suspect]
     Active Substance: SACUBITRIL\VALSARTAN
     Dosage: 100 MG (49/51 MG), BID
     Route: 048
     Dates: start: 20160929
  4. ASA [Concomitant]
     Active Substance: ASPIRIN
     Indication: CORONARY ARTERY DISEASE
     Dosage: 1 DF (100 MG), QD
     Route: 048

REACTIONS (4)
  - Arterial occlusive disease [Recovering/Resolving]
  - Eye injury [Recovered/Resolved with Sequelae]
  - Facial bones fracture [Recovered/Resolved with Sequelae]
  - Eye contusion [Recovered/Resolved with Sequelae]

NARRATIVE: CASE EVENT DATE: 20161007
